FAERS Safety Report 9927895 (Version 1)
Quarter: 2014Q1

REPORT INFORMATION
  Report Type: Spontaneous
  Country: JP (occurrence: None)
  Receive Date: 20140224
  Receipt Date: 20140224
  Transmission Date: 20141002
  Serious: Yes (Other)
  Sender: FDA-Public Use
  Company Number: 2014P1001385

PATIENT
  Age: 2 Year
  Sex: Female

DRUGS (2)
  1. VALPROATE SODIUM [Suspect]
     Indication: EPILEPSY
  2. MIDAZOLAM [Concomitant]

REACTIONS (3)
  - Convulsion [None]
  - Electrocardiogram abnormal [None]
  - Cerebral atrophy [None]
